FAERS Safety Report 9542449 (Version 1)
Quarter: 2013Q3

REPORT INFORMATION
  Report Type: Spontaneous
  Country: US (occurrence: None)
  Receive Date: 20130918
  Receipt Date: 20130918
  Transmission Date: 20140515
  Serious: No
  Sender: FDA-Public Use
  Company Number: 13AE016

PATIENT
  Sex: Male

DRUGS (1)
  1. EQUATE IBUPROFEN [Suspect]
     Dosage: 4 BY MOUTH
     Route: 048
     Dates: start: 20130911

REACTIONS (1)
  - Overdose [None]
